FAERS Safety Report 7956248-2 (Version None)
Quarter: 2011Q4

REPORT INFORMATION
  Report Type: 
  Country: None (occurrence: None)
  Receive Date: 20111205
  Receipt Date: 20111128
  Transmission Date: 20120403
  Serious: Yes (Other)
  Sender: FDA-Public Use
  Company Number: US-JNJFOC-20110907713

PATIENT
  Sex: Female
  Weight: 49.9 kg

DRUGS (3)
  1. FENTANYL-100 [Suspect]
     Route: 062
     Dates: start: 20110908
  2. PAIN MEDICATION UNSPECIFIED [Concomitant]
     Indication: PAIN
     Route: 065
  3. FENTANYL-100 [Suspect]
     Indication: PAIN
     Route: 062

REACTIONS (8)
  - FIBROMYALGIA [None]
  - SINUSITIS [None]
  - WRONG TECHNIQUE IN DRUG USAGE PROCESS [None]
  - INAPPROPRIATE SCHEDULE OF DRUG ADMINISTRATION [None]
  - EHLERS-DANLOS SYNDROME [None]
  - DRUG EFFECT DECREASED [None]
  - DRUG DOSE OMISSION [None]
  - PRODUCT QUALITY ISSUE [None]
